FAERS Safety Report 5739506-1 (Version None)
Quarter: 2008Q2

REPORT INFORMATION
  Report Type: 
  Country: None (occurrence: None)
  Receive Date: 20080515
  Receipt Date: 20080506
  Transmission Date: 20081010
  Serious: Yes (Hospitalization)
  Sender: FDA-Public Use
  Company Number: CA-PFIZER INC-2008040223

PATIENT
  Sex: Male

DRUGS (11)
  1. SU-011,248 [Suspect]
     Indication: METASTATIC RENAL CELL CARCINOMA
     Route: 048
  2. ATENOLOL [Concomitant]
     Route: 048
  3. LIPITOR [Concomitant]
     Route: 048
  4. ASPIRIN [Concomitant]
     Route: 048
  5. PAXIL [Concomitant]
     Route: 048
  6. TYLENOL [Concomitant]
     Route: 048
  7. ALL OTHER THERAPEUTIC PRODUCTS [Concomitant]
     Route: 042
  8. PARIET [Concomitant]
     Route: 048
  9. PROCHLORPERAZINE [Concomitant]
     Route: 048
  10. METOCLOPRAMIDE [Concomitant]
     Route: 048
  11. PAROXETINE HCL [Concomitant]
     Route: 048

REACTIONS (1)
  - ANGINA UNSTABLE [None]
